FAERS Safety Report 7404997-7 (Version None)
Quarter: 2011Q2

REPORT INFORMATION
  Report Type: 
  Country: None (occurrence: None)
  Receive Date: 20110411
  Receipt Date: 20110329
  Transmission Date: 20111010
  Serious: Yes (Death)
  Sender: FDA-Public Use
  Company Number: DK-RANBAXY-2011R1-43573

PATIENT
  Age: 11 Day

DRUGS (1)
  1. FLUOXETINE [Suspect]
     Indication: PRODUCT USED FOR UNKNOWN INDICATION
     Dosage: UNK
     Route: 064

REACTIONS (6)
  - DRUG EXPOSURE DURING PREGNANCY [None]
  - DEATH [None]
  - DRUG WITHDRAWAL SYNDROME NEONATAL [None]
  - NEONATAL ANOXIA [None]
  - CEREBRAL DISORDER [None]
  - CIRCULATORY FAILURE NEONATAL [None]
